FAERS Safety Report 14484388 (Version 1)
Quarter: 2018Q1

REPORT INFORMATION
  Report Type: Spontaneous
  Country: US (occurrence: US)
  Receive Date: 20180202
  Receipt Date: 20180202
  Transmission Date: 20180509
  Serious: Yes (Other)
  Sender: FDA-Public Use
  Company Number: None

PATIENT
  Age: 31 Year
  Sex: Female

DRUGS (1)
  1. PROGESTERONE. [Suspect]
     Active Substance: PROGESTERONE
     Indication: PREGNANCY
     Dosage: OTHER ROUTE:HIP INJECTION?

REACTIONS (2)
  - Maternal exposure timing unspecified [None]
  - Stillbirth [None]

NARRATIVE: CASE EVENT DATE: 20160730
